FAERS Safety Report 9768137 (Version 1)
Quarter: 2013Q4

REPORT INFORMATION
  Report Type: Spontaneous
  Country: US (occurrence: US)
  Receive Date: 20131217
  Receipt Date: 20131217
  Transmission Date: 20140711
  Serious: Yes (Other)
  Sender: FDA-Public Use
  Company Number: US-GLAXOSMITHKLINE-A1053059A

PATIENT
  Age: 64 Year
  Sex: Female

DRUGS (4)
  1. ADVAIR [Suspect]
     Indication: CHRONIC OBSTRUCTIVE PULMONARY DISEASE
     Dosage: 1PUFF TWICE PER DAY
     Route: 055
     Dates: start: 201212
  2. METOPROLOL [Concomitant]
  3. VOLTAREN [Concomitant]
  4. NEURONTIN [Concomitant]

REACTIONS (3)
  - Hip fracture [Unknown]
  - Oral disorder [Unknown]
  - Stomatitis [Unknown]
